FAERS Safety Report 15300015 (Version 9)
Quarter: 2020Q4

REPORT INFORMATION
  Report Type: Spontaneous
  Country: US (occurrence: US)
  Receive Date: 20180821
  Receipt Date: 20201012
  Transmission Date: 20210113
  Serious: Yes (Other)
  Sender: FDA-Public Use
  Company Number: US-PFIZER INC-2018331081

PATIENT
  Age: 56 Year
  Sex: Female

DRUGS (4)
  1. LYRICA [Suspect]
     Active Substance: PREGABALIN
     Indication: POLYNEUROPATHY
     Dosage: 150 MG, 3X/DAY
     Route: 048
  2. LYRICA [Suspect]
     Active Substance: PREGABALIN
     Indication: PULMONARY SARCOIDOSIS
  3. LYRICA [Suspect]
     Active Substance: PREGABALIN
     Indication: CUTANEOUS SARCOIDOSIS
  4. LYRICA [Suspect]
     Active Substance: PREGABALIN
     Indication: IMMUNOSUPPRESSION

REACTIONS (12)
  - Oropharyngeal discomfort [Unknown]
  - Pharyngeal disorder [Unknown]
  - Product dose omission issue [Unknown]
  - Sarcoidosis [Unknown]
  - Fall [Unknown]
  - Stress [Unknown]
  - Condition aggravated [Unknown]
  - Burning sensation [Unknown]
  - Feeling abnormal [Unknown]
  - Peripheral swelling [Unknown]
  - Skin wound [Unknown]
  - Illness [Unknown]
